FAERS Safety Report 15013992 (Version 1)
Quarter: 2018Q2

REPORT INFORMATION
  Report Type: Spontaneous
  Country: GB (occurrence: GB)
  Receive Date: 20180614
  Receipt Date: 20180614
  Transmission Date: 20180711
  Serious: Yes (Other)
  Sender: FDA-Public Use
  Company Number: GB-TEVA-2018-GB-907139

PATIENT
  Age: 61 Year
  Sex: Female
  Weight: 66.67 kg

DRUGS (3)
  1. FEXOFENADINE [Suspect]
     Active Substance: FEXOFENADINE\FEXOFENADINE HYDROCHLORIDE
     Indication: HYPERSENSITIVITY
     Dosage: 360 MILLIGRAM DAILY;
     Route: 048
     Dates: start: 20180129, end: 20180418
  2. FULTIUM-D3 [Concomitant]
     Active Substance: CHOLECALCIFEROL
  3. VENLAFAXINE [Concomitant]
     Active Substance: VENLAFAXINE HYDROCHLORIDE

REACTIONS (2)
  - Urticaria [Not Recovered/Not Resolved]
  - Allergic reaction to excipient [Unknown]

NARRATIVE: CASE EVENT DATE: 20180129
